FAERS Safety Report 13614426 (Version 19)
Quarter: 2018Q4

REPORT INFORMATION
  Report Type: Report from Study
  Country: US (occurrence: US)
  Receive Date: 20170606
  Receipt Date: 20181209
  Transmission Date: 20190204
  Serious: Yes (Hospitalization, Other)
  Sender: FDA-Public Use
  Company Number: US-MALLINCKRODT-T201606525

PATIENT
  Age: 76 Year
  Sex: Female

DRUGS (11)
  1. REPOSITORY CORTICOTROPIN INJECTION [Suspect]
     Active Substance: CORTICOTROPIN
     Dosage: 40 UNITS THREE TIMES WEEKLY
     Route: 065
     Dates: start: 2017
  2. REPOSITORY CORTICOTROPIN INJECTION [Suspect]
     Active Substance: CORTICOTROPIN
     Dosage: 40 UNITS/0.5 ML, 3 TIMES A WEEK
     Route: 058
  3. FLU SHOT [Concomitant]
     Active Substance: INFLUENZA VIRUS VACCINE
     Indication: PRODUCT USED FOR UNKNOWN INDICATION
     Dosage: UNK
     Route: 065
     Dates: start: 20180919, end: 20180919
  4. REPOSITORY CORTICOTROPIN INJECTION [Suspect]
     Active Substance: CORTICOTROPIN
     Dosage: 40 UNITS/0.5 ML, 3 TIMES A WEEK
     Route: 058
  5. REPOSITORY CORTICOTROPIN INJECTION [Suspect]
     Active Substance: CORTICOTROPIN
     Dosage: 40 UNITS/0.5 ML, 3 TIMES A WEEK
     Route: 058
  6. REPOSITORY CORTICOTROPIN INJECTION [Suspect]
     Active Substance: CORTICOTROPIN
     Indication: PROTEINURIA
     Dosage: 80 UNITS/1 ML, 3 TIMES A WEEK
     Route: 058
     Dates: start: 20161119
  7. REPOSITORY CORTICOTROPIN INJECTION [Suspect]
     Active Substance: CORTICOTROPIN
     Indication: NEPHROTIC SYNDROME
     Dosage: 40 UNITS/.5 ML, 3 TIMES A WEEK
     Route: 058
  8. REPOSITORY CORTICOTROPIN INJECTION [Suspect]
     Active Substance: CORTICOTROPIN
     Dosage: 40 UNITS/0.5 ML, 3 TIMES A WEEK
     Route: 058
  9. REPOSITORY CORTICOTROPIN INJECTION [Suspect]
     Active Substance: CORTICOTROPIN
     Dosage: 40 UNITS/0.5 ML, 3 TIMES A WEEK
     Route: 058
  10. REPOSITORY CORTICOTROPIN INJECTION [Suspect]
     Active Substance: CORTICOTROPIN
     Dosage: 40 UNITS/0.5 ML, 3 TIMES A WEEK
     Route: 058
  11. REPOSITORY CORTICOTROPIN INJECTION [Suspect]
     Active Substance: CORTICOTROPIN
     Dosage: 40 UNITS/0.5 ML, 3 TIMES A WEEK
     Route: 058

REACTIONS (20)
  - Abdominal pain upper [Not Recovered/Not Resolved]
  - Fatigue [Not Recovered/Not Resolved]
  - Product dose omission [Unknown]
  - Asthenia [Not Recovered/Not Resolved]
  - Back pain [Unknown]
  - Pain [Not Recovered/Not Resolved]
  - Blood pressure fluctuation [Unknown]
  - Intestinal obstruction [Unknown]
  - Hypertension [Not Recovered/Not Resolved]
  - Proteinuria [Recovering/Resolving]
  - Weight increased [Not Recovered/Not Resolved]
  - Pruritus [Not Recovered/Not Resolved]
  - Chronic kidney disease [Unknown]
  - Sleep disorder [Not Recovered/Not Resolved]
  - Dysarthria [Unknown]
  - Abdominal distension [Unknown]
  - Nasopharyngitis [Not Recovered/Not Resolved]
  - Postoperative adhesion [Recovering/Resolving]
  - Oedema peripheral [Recovering/Resolving]
  - Crying [Not Recovered/Not Resolved]

NARRATIVE: CASE EVENT DATE: 20161119
